FAERS Safety Report 9895727 (Version 1)
Quarter: 2014Q1

REPORT INFORMATION
  Report Type: Spontaneous
  Country: US (occurrence: US)
  Receive Date: 20140213
  Receipt Date: 20140213
  Transmission Date: 20141002
  Serious: No
  Sender: FDA-Public Use
  Company Number: US-BRISTOL-MYERS SQUIBB COMPANY-18978403

PATIENT
  Age: 64 Year
  Sex: Female
  Weight: 61.22 kg

DRUGS (6)
  1. ORENCIA [Suspect]
     Indication: RHEUMATOID ARTHRITIS
  2. XELJANZ [Suspect]
     Indication: RHEUMATOID ARTHRITIS
     Dates: start: 201304
  3. SIMPONI [Suspect]
     Indication: RHEUMATOID ARTHRITIS
  4. ENBREL [Suspect]
     Indication: RHEUMATOID ARTHRITIS
     Dates: start: 2007
  5. HUMIRA [Suspect]
     Indication: RHEUMATOID ARTHRITIS
  6. LEUCOVORIN [Suspect]
     Indication: RHEUMATOID ARTHRITIS

REACTIONS (6)
  - Finger deformity [Unknown]
  - Dry mouth [Unknown]
  - Vocal cord cyst [Unknown]
  - Sinus disorder [Unknown]
  - Alopecia [Unknown]
  - Rheumatoid arthritis [Unknown]
